FAERS Safety Report 4852267-3 (Version None)
Quarter: 2005Q4

REPORT INFORMATION
  Report Type: 
  Country: None (occurrence: None)
  Receive Date: 20051213
  Receipt Date: 20050930
  Transmission Date: 20060501
  Serious: Yes (Death, Hospitalization, Disabling)
  Sender: FDA-Public Use
  Company Number: US-MERCK-0510USA00684

PATIENT
  Age: 49 Year
  Sex: Male
  Weight: 86 kg

DRUGS (5)
  1. VIOXX [Suspect]
     Indication: ARTHRITIS
     Route: 048
     Dates: start: 20020901, end: 20030731
  2. INSULIN [Concomitant]
     Route: 065
  3. LORTAB [Concomitant]
     Route: 065
  4. LOTENSIN [Concomitant]
     Route: 065
  5. VALIUM [Concomitant]
     Route: 065

REACTIONS (6)
  - ACCIDENT [None]
  - BACK PAIN [None]
  - DEATH [None]
  - DIABETES MELLITUS [None]
  - MYOCARDIAL INFARCTION [None]
  - OVERDOSE [None]
